FAERS Safety Report 4288870-1 (Version None)
Quarter: 2004Q1

REPORT INFORMATION
  Report Type: 
  Country: None (occurrence: None)
  Receive Date: 20040203
  Receipt Date: 20031208
  Transmission Date: 20041129
  Serious: Yes (Hospitalization)
  Sender: FDA-Public Use
  Company Number: 2003-110958-NL

PATIENT
  Age: 26 Year
  Sex: Female
  Weight: 77.3 kg

DRUGS (3)
  1. NUVARING [Suspect]
     Indication: CONTRACEPTION
     Dosage: DF DAILY VAGINAL
     Route: 067
     Dates: start: 20030401, end: 20030901
  2. EFFEXOR [Concomitant]
  3. PRAVACHOL [Concomitant]

REACTIONS (1)
  - JUGULAR VEIN THROMBOSIS [None]
